FAERS Safety Report 7561929-9 (Version None)
Quarter: 2011Q2

REPORT INFORMATION
  Report Type: 
  Country: None (occurrence: None)
  Receive Date: 20110621
  Receipt Date: 20110610
  Transmission Date: 20111010
  Serious: Yes (Hospitalization, Other)
  Sender: FDA-Public Use
  Company Number: NL-BAXTER-2010BH025392

PATIENT
  Age: 68 Year
  Sex: Male
  Weight: 72 kg

DRUGS (2)
  1. PHYSIOSOL IN PLASTIC CONTAINER [Suspect]
     Indication: PERITONEAL DIALYSIS
     Route: 033
     Dates: start: 20101001, end: 20100101
  2. EXTRANEAL [Suspect]
     Indication: PERITONEAL DIALYSIS
     Route: 033
     Dates: start: 20101001, end: 20100101

REACTIONS (3)
  - BACTERAEMIA [None]
  - FUNGAL PERITONITIS [None]
  - ECZEMA [None]
